FAERS Safety Report 13976710 (Version 2)
Quarter: 2019Q2

REPORT INFORMATION
  Report Type: Spontaneous
  Country: BR (occurrence: BR)
  Receive Date: 20170915
  Receipt Date: 20190610
  Transmission Date: 20190711
  Serious: Yes (Other)
  Sender: FDA-Public Use
  Company Number: BR-PFIZER INC-2016152605

PATIENT
  Age: 53 Year
  Sex: Female
  Weight: 67 kg

DRUGS (3)
  1. SUTENT [Suspect]
     Active Substance: SUNITINIB MALATE
     Dosage: UNK
  2. METFORMIN HYDROCHLORIDE. [Concomitant]
     Active Substance: METFORMIN HYDROCHLORIDE
     Indication: DIABETES MELLITUS
     Dosage: 1 TABLET AT NIGHT
  3. SUTENT [Suspect]
     Active Substance: SUNITINIB MALATE
     Indication: METASTATIC RENAL CELL CARCINOMA
     Dosage: 50 MG, CYCLE (4X2)
     Route: 048
     Dates: start: 20151204

REACTIONS (31)
  - Limb injury [Unknown]
  - Skin atrophy [Unknown]
  - Swelling face [Unknown]
  - Feeling abnormal [Unknown]
  - Wound [Unknown]
  - Skin sensitisation [Unknown]
  - Skin injury [Unknown]
  - Liver injury [Not Recovered/Not Resolved]
  - Eye swelling [Recovering/Resolving]
  - Swelling of eyelid [Recovering/Resolving]
  - Genital erythema [Unknown]
  - Thermal burn [Not Recovered/Not Resolved]
  - Weight decreased [Unknown]
  - Ageusia [Not Recovered/Not Resolved]
  - Oral pain [Unknown]
  - Memory impairment [Unknown]
  - Walking disability [Unknown]
  - Yellow skin [Not Recovered/Not Resolved]
  - Genital injury [Unknown]
  - Dry eye [Not Recovered/Not Resolved]
  - Abdominal pain upper [Not Recovered/Not Resolved]
  - Blister [Unknown]
  - Decreased appetite [Not Recovered/Not Resolved]
  - Skin discolouration [Unknown]
  - Oral mucosal blistering [Unknown]
  - Erythema [Unknown]
  - Skin exfoliation [Unknown]
  - Malaise [Not Recovered/Not Resolved]
  - Mouth injury [Not Recovered/Not Resolved]
  - Sleep disorder [Unknown]
  - Dry skin [Unknown]

NARRATIVE: CASE EVENT DATE: 201601
